FAERS Safety Report 4508764-3 (Version None)
Quarter: 2004Q4

REPORT INFORMATION
  Report Type: 
  Country: None (occurrence: None)
  Receive Date: 20041123
  Receipt Date: 20040719
  Transmission Date: 20050328
  Serious: No
  Sender: FDA-Public Use
  Company Number: US-GLAXOSMITHKLINE-A0518820A

PATIENT
  Age: 29 Year
  Sex: Male
  Weight: 109.1 kg

DRUGS (9)
  1. WELLBUTRIN SR [Suspect]
     Indication: DRUG USE FOR UNKNOWN INDICATION
     Dosage: 200MG TWICE PER DAY
     Route: 048
     Dates: start: 20030313
  2. FLEXERIL [Concomitant]
  3. ENDOCET [Concomitant]
  4. NASACORT AQ [Concomitant]
     Route: 045
  5. PROTONIX [Concomitant]
  6. ALLEGRA [Concomitant]
  7. ZOLOFT [Concomitant]
  8. AMBIEN [Concomitant]
  9. TOPAMAX [Concomitant]

REACTIONS (4)
  - ABDOMINAL PAIN UPPER [None]
  - FLATULENCE [None]
  - PHARMACEUTICAL PRODUCT COMPLAINT [None]
  - SKIN ODOUR ABNORMAL [None]
